FAERS Safety Report 17249768 (Version 2)
Quarter: 2020Q1

REPORT INFORMATION
  Report Type: Report from Study
  Country: None (occurrence: JP)
  Receive Date: 20200109
  Receipt Date: 20200305
  Transmission Date: 20200409
  Serious: Yes (Hospitalization)
  Sender: FDA-Public Use
  Company Number: JP-ABBVIE-20K-087-3224426-00

PATIENT
  Age: 66 Year
  Sex: Male
  Weight: 61.9 kg

DRUGS (5)
  1. MONOAMMONIUM GLYCYRRHIZINATE [Concomitant]
     Active Substance: AMMONIUM GLYCYRRHIZATE
     Indication: HEPATITIS C
     Dosage: 2 OR 3 TIMES/WEEK
     Route: 040
     Dates: start: 20110101, end: 20140823
  2. L-CYSTEINE HYDROCHLORIDE [Concomitant]
     Active Substance: CYSTEINE HYDROCHLORIDE
     Indication: HEPATITIS C
     Dosage: 2 OR 3 TIMES/WEEK
     Route: 040
     Dates: start: 20110101, end: 20140823
  3. VIEKIRAX [Suspect]
     Active Substance: OMBITASVIR\PARITAPREVIR\RITONAVIR
     Indication: CHRONIC HEPATITIS C
     Route: 048
     Dates: start: 20140308, end: 20140602
  4. URSODEOXYCHOLIC ACID [Concomitant]
     Active Substance: URSODIOL
     Indication: HEPATITIS C
     Route: 048
     Dates: start: 20110101, end: 20140825
  5. GLYCINE. [Concomitant]
     Active Substance: GLYCINE
     Indication: HEPATITIS C
     Dosage: 2 OR 3 TIMES/WEEK
     Route: 040
     Dates: start: 20110101, end: 20140823

REACTIONS (1)
  - Varices oesophageal [Recovering/Resolving]

NARRATIVE: CASE EVENT DATE: 20190627
